FAERS Safety Report 6567017-2 (Version None)
Quarter: 2010Q1

REPORT INFORMATION
  Report Type: 
  Country: None (occurrence: None)
  Receive Date: 20100127
  Receipt Date: 20100115
  Transmission Date: 20100710
  Serious: Yes (Hospitalization)
  Sender: FDA-Public Use
  Company Number: 004859

PATIENT
  Age: 8 Year
  Sex: Female

DRUGS (1)
  1. XOZAL (XOZAL) [Suspect]
     Indication: PITYRIASIS
     Dosage: 10 ML, ONCE ORAL
     Route: 048
     Dates: start: 20100114, end: 20100114

REACTIONS (2)
  - DRUG ADMINISTRATION ERROR [None]
  - DRUG DISPENSING ERROR [None]
